FAERS Safety Report 5349858-2 (Version None)
Quarter: 2007Q2

REPORT INFORMATION
  Report Type: 
  Country: None (occurrence: None)
  Receive Date: 20070607
  Receipt Date: 20070605
  Transmission Date: 20071010
  Serious: Yes (Hospitalization)
  Sender: FDA-Public Use
  Company Number: AR-BOEHRINGER INGELHEIM PHARMACEUTICALS, INC.-2007-BP-07184RA

PATIENT
  Age: 75 Year
  Sex: Male

DRUGS (3)
  1. SIFROL TABLETS [Suspect]
     Indication: PARKINSON'S DISEASE
     Route: 048
     Dates: end: 20070525
  2. MICARDIS [Concomitant]
     Indication: HYPERTENSION
  3. LEBOCAR [Concomitant]
     Indication: PARKINSON'S DISEASE

REACTIONS (1)
  - BLOOD ELECTROLYTES DECREASED [None]
